FAERS Safety Report 5176944-2 (Version None)
Quarter: 2006Q4

REPORT INFORMATION
  Report Type: 
  Country: None (occurrence: None)
  Receive Date: 20061214
  Receipt Date: 20061110
  Transmission Date: 20070319
  Serious: Yes (Other)
  Sender: FDA-Public Use
  Company Number: PHRM2006FR03074

PATIENT
  Age: 70 Year
  Sex: Male

DRUGS (6)
  1. STALEVO 100 [Suspect]
     Indication: PARKINSON'S DISEASE
     Dosage: 600/400/100 MG/DAY
     Route: 048
     Dates: start: 20050101
  2. XELODA [Suspect]
     Indication: NASAL SINUS CANCER
     Dosage: 1 DF TID, 5 DAYS/WEEK
     Route: 048
     Dates: start: 20061023
  3. CORVASAL [Concomitant]
     Indication: STENT PLACEMENT
     Route: 048
  4. LEPONEX [Concomitant]
     Route: 048
  5. CITALOPRAM HYDROBROMIDE [Concomitant]
     Route: 048
  6. EQUANIL [Concomitant]
     Route: 048

REACTIONS (4)
  - ANXIETY [None]
  - DISORIENTATION [None]
  - DRUG INTERACTION [None]
  - MEMORY IMPAIRMENT [None]
